FAERS Safety Report 5930779-9 (Version None)
Quarter: 2008Q4

REPORT INFORMATION
  Report Type: 
  Country: None (occurrence: None)
  Receive Date: 20081022
  Receipt Date: 20081006
  Transmission Date: 20090506
  Serious: Yes (Other)
  Sender: FDA-Public Use
  Company Number: 8036341

PATIENT
  Age: 28 Year
  Sex: Male
  Weight: 60 kg

DRUGS (3)
  1. KEPPRA [Suspect]
     Dosage: 25000 MG ONCE PO
     Route: 048
     Dates: start: 20080801, end: 20080801
  2. GABAPENTIN [Suspect]
     Dosage: 40000 MG ONCE PO
     Route: 048
     Dates: start: 20080801, end: 20080801
  3. ALCOHOL [Suspect]
     Dates: start: 20080801, end: 20080801

REACTIONS (4)
  - INTENTIONAL DRUG MISUSE [None]
  - NAUSEA [None]
  - RESTLESSNESS [None]
  - SUICIDE ATTEMPT [None]
